FAERS Safety Report 15931472 (Version 1)
Quarter: 2019Q1

REPORT INFORMATION
  Report Type: Spontaneous
  Country: IT (occurrence: IT)
  Receive Date: 20190207
  Receipt Date: 20190207
  Transmission Date: 20190417
  Serious: Yes (Life-Threatening)
  Sender: FDA-Public Use
  Company Number: IT-ACCORD-105364

PATIENT
  Age: 84 Year
  Sex: Male

DRUGS (2)
  1. METHOTREXATE. [Suspect]
     Active Substance: METHOTREXATE
     Indication: RHEUMATOID ARTHRITIS
  2. FOLIC ACID. [Concomitant]
     Active Substance: FOLIC ACID
     Indication: SUPPLEMENTATION THERAPY
     Dosage: ARBITRARILY INTERRUPTED BY THE PATIENT

REACTIONS (6)
  - Mucocutaneous ulceration [Recovered/Resolved]
  - Transaminases increased [Recovered/Resolved]
  - Lymphopenia [Recovered/Resolved]
  - Blood creatinine increased [Recovered/Resolved]
  - Leukocytosis [Recovered/Resolved]
  - Groin pain [Recovered/Resolved]
